FAERS Safety Report 4765160-1 (Version None)
Quarter: 2005Q3

REPORT INFORMATION
  Report Type: 
  Country: None (occurrence: None)
  Receive Date: 20050906
  Receipt Date: 20050826
  Transmission Date: 20060218
  Serious: Yes (Hospitalization, Other)
  Sender: FDA-Public Use
  Company Number: 2005120764

PATIENT
  Age: 9 Year
  Sex: Male

DRUGS (4)
  1. ZOLOFT [Suspect]
     Indication: ANXIETY
     Dosage: 25 MG (25 MG, 1 IN 1 D), ORAL
     Route: 048
     Dates: start: 20040101, end: 20040301
  2. ZYPREXA [Suspect]
     Indication: ILL-DEFINED DISORDER
     Dates: start: 20040301
  3. SEROQUEL [Suspect]
     Indication: ILL-DEFINED DISORDER
     Dates: start: 20040101
  4. CONCRETA (METHYLPHENIDATE HYDROCHLORIDE) [Concomitant]

REACTIONS (3)
  - AGITATION [None]
  - DRUG INEFFECTIVE [None]
  - PSYCHOTIC DISORDER [None]
